FAERS Safety Report 4467829-5 (Version None)
Quarter: 2004Q4

REPORT INFORMATION
  Report Type: 
  Country: None (occurrence: None)
  Receive Date: 20041007
  Receipt Date: 20040922
  Transmission Date: 20050328
  Serious: Yes (Death)
  Sender: FDA-Public Use
  Company Number: JP-JNJFOC-20041001022

PATIENT
  Sex: Male

DRUGS (6)
  1. DUROTEP [Suspect]
     Indication: CANCER PAIN
     Route: 062
     Dates: start: 20040708, end: 20040719
  2. MIXED AMINO ACID CARBOHYDRATE ELECTROLYTE COMBINED DRUG 3-1 [Concomitant]
     Route: 042
     Dates: start: 20040706, end: 20040719
  3. MIXED VITAMIN PREPARATIONS [Concomitant]
     Indication: VITAMIN SUPPLEMENTATION
     Route: 042
     Dates: start: 20040706, end: 20040719
  4. MANGANESE CHLORIDE [Concomitant]
     Indication: VITAMIN SUPPLEMENTATION
     Route: 042
     Dates: start: 20040706, end: 20040719
  5. ZINC SULFATE [Concomitant]
     Indication: VITAMIN SUPPLEMENTATION
     Route: 042
     Dates: start: 20040706, end: 20040719
  6. FUROSEMIDE [Concomitant]
     Indication: ASCITES
     Route: 042
     Dates: start: 20040706, end: 20040719

REACTIONS (1)
  - DEATH [None]
